FAERS Safety Report 14879905 (Version 1)
Quarter: 2018Q2

REPORT INFORMATION
  Report Type: Report from Study
  Country: BR (occurrence: BR)
  Receive Date: 20180511
  Receipt Date: 20180511
  Transmission Date: 20180711
  Serious: Yes (Death, Hospitalization)
  Sender: FDA-Public Use
  Company Number: PHHY2018BR003293

PATIENT
  Age: 83 Year
  Sex: Female
  Weight: 50 kg

DRUGS (1)
  1. DIOVAN [Suspect]
     Active Substance: VALSARTAN
     Indication: HYPERTENSION
     Dosage: 2 DF, QD (1 IN THE MORNING AND 1 AT NIGHT)
     Route: 048
     Dates: start: 20130812, end: 20170109

REACTIONS (3)
  - Inappropriate schedule of drug administration [Unknown]
  - Cardio-respiratory arrest [Fatal]
  - Coma [Fatal]

NARRATIVE: CASE EVENT DATE: 20170109
